FAERS Safety Report 6504811-8 (Version None)
Quarter: 2009Q4

REPORT INFORMATION
  Report Type: 
  Country: None (occurrence: None)
  Receive Date: 20091215
  Receipt Date: 20091106
  Transmission Date: 20100525
  Serious: Yes (Hospitalization)
  Sender: FDA-Public Use
  Company Number: AE-2009-289

PATIENT
  Age: 50 Year
  Sex: Female

DRUGS (7)
  1. ATENOLOL [Suspect]
     Dosage: ORAL
     Route: 048
  2. RAMIPRIL [Suspect]
     Dosage: ORAL
     Route: 048
  3. MYOCRISIN (SODIUM AUROTHIOMALATE) [Suspect]
     Dosage: 10MG, INTRAMUSCULARLY
     Route: 030
     Dates: start: 20080924
  4. SIMVASTATIN [Suspect]
     Dosage: ORAL
     Route: 048
  5. LANSOPRAZOL [Concomitant]
  6. PREDNISOLONE [Concomitant]
  7. CODEINE PHOSPHATE [Concomitant]

REACTIONS (18)
  - ALANINE AMINOTRANSFERASE INCREASED [None]
  - ASTHENIA [None]
  - BODY TEMPERATURE INCREASED [None]
  - BURNING SENSATION [None]
  - C-REACTIVE PROTEIN INCREASED [None]
  - DIARRHOEA [None]
  - DRUG INTERACTION [None]
  - FALL [None]
  - HEADACHE [None]
  - MALAISE [None]
  - MUSCULOSKELETAL STIFFNESS [None]
  - NAUSEA [None]
  - PLATELET COUNT DECREASED [None]
  - RASH [None]
  - RENAL FAILURE [None]
  - SHOCK [None]
  - SYNCOPE [None]
  - VOMITING [None]
